FAERS Safety Report 22214365 (Version 2)
Quarter: 2023Q2

REPORT INFORMATION
  Report Type: Spontaneous
  Country: FR (occurrence: FR)
  Receive Date: 20230414
  Receipt Date: 20230614
  Transmission Date: 20230722
  Serious: Yes (Hospitalization, Congenital Anomaly, Other)
  Sender: FDA-Public Use
  Company Number: FR-AMERICAN REGENT INC-2023000876

PATIENT
  Sex: Male

DRUGS (1)
  1. FERINJECT [Suspect]
     Active Substance: FERRIC CARBOXYMALTOSE
     Indication: Product used for unknown indication
     Dosage: UNK; ONE BOTTLE
     Route: 064
     Dates: start: 20230102, end: 20230114

REACTIONS (6)
  - Foetal hypokinesia [Recovered/Resolved]
  - Anorectal malformation [Unknown]
  - Spermatic cord funiculitis [Unknown]
  - Small for dates baby [Unknown]
  - Hypokinesia neonatal [Recovered/Resolved]
  - Foetal exposure during pregnancy [Unknown]

NARRATIVE: CASE EVENT DATE: 20230101
